FAERS Safety Report 9271710 (Version 1)
Quarter: 2013Q2

REPORT INFORMATION
  Report Type: Spontaneous
  Country: US (occurrence: US)
  Receive Date: 20130506
  Receipt Date: 20130506
  Transmission Date: 20140414
  Serious: No
  Sender: FDA-Public Use
  Company Number: US-COVIDIEN/TYCO HEALTHCARE/MALLINCKRODT-T201204309

PATIENT
  Age: 65 Year
  Sex: Female

DRUGS (7)
  1. HYDROCODONE/ACETAMINOPHEN [Suspect]
     Indication: PAIN
     Dosage: 5/325 MG, ONE TAB THREE TO FOUR PER DAY
     Dates: start: 201207, end: 201211
  2. HYDROCODONE/ACETAMINOPHEN [Suspect]
     Dosage: 1/2 TAB IN AM; 1/2 TAB IN PM
     Dates: start: 201211
  3. PREDNISONE [Concomitant]
     Dosage: 5 MG, QD
  4. DETROL [Concomitant]
     Indication: HYPERTONIC BLADDER
     Dosage: UNK
  5. ENBREL [Concomitant]
     Indication: RHEUMATOID ARTHRITIS
     Dosage: Q WEEK INJECTION
  6. METHOTREXATE [Concomitant]
     Dosage: 4 TABS Q WEEK
     Dates: start: 201208, end: 201211
  7. VITAMINS /90003601/ [Concomitant]
     Dosage: UNK

REACTIONS (7)
  - Intentional drug misuse [Unknown]
  - Vision blurred [Not Recovered/Not Resolved]
  - Agitation [Recovering/Resolving]
  - Depressed mood [Recovering/Resolving]
  - Personality change [Recovering/Resolving]
  - Fatigue [Unknown]
  - Arthritis [Unknown]
